FAERS Safety Report 11231141 (Version 1)
Quarter: 2015Q2

REPORT INFORMATION
  Report Type: Spontaneous
  Country: US (occurrence: None)
  Receive Date: 20150629
  Receipt Date: 20150629
  Transmission Date: 20150821
  Serious: Yes (Disabling)
  Sender: FDA-Public Use
  Company Number: None

PATIENT
  Age: 66 Year
  Sex: Female
  Weight: 70.31 kg

DRUGS (3)
  1. AVALOX [Suspect]
     Active Substance: MOXIFLOXACIN HYDROCHLORIDE
  2. CIPRO [Suspect]
     Active Substance: CIPROFLOXACIN HYDROCHLORIDE
  3. LEVAQUIN [Suspect]
     Active Substance: LEVOFLOXACIN

REACTIONS (4)
  - Drug hypersensitivity [None]
  - Neuropathy peripheral [None]
  - Fibromyalgia [None]
  - Urticaria [None]
